FAERS Safety Report 9126432 (Version 2)
Quarter: 2013Q1

REPORT INFORMATION
  Report Type: Report from Study
  Country: US (occurrence: US)
  Receive Date: 20130117
  Receipt Date: 20130125
  Transmission Date: 20140127
  Serious: No
  Sender: FDA-Public Use
  Company Number: US-VERTEX PHARMACEUTICALS INC.-2013-000699

PATIENT
  Sex: Female
  Weight: 90 kg

DRUGS (9)
  1. VX-950 (TELAPREVIR) [Suspect]
     Indication: HEPATITIS C
     Dosage: 750 MG, TID
     Route: 048
     Dates: start: 2012
  2. PEGASYS [Suspect]
     Indication: HEPATITIS C
     Dosage: 180 ?G, QW
     Route: 058
     Dates: start: 2012
  3. RIBASPHERE [Suspect]
     Indication: HEPATITIS C
     Dosage: 400 MG, BID
     Route: 048
     Dates: start: 2012
  4. CALCIUM [Concomitant]
     Dosage: 660 MG, QD
     Route: 048
  5. MULTIVITAMINS [Concomitant]
     Dosage: 1 UNK, QD
     Route: 048
  6. CO Q-10 [Concomitant]
     Dosage: 100 MG, QD
     Route: 048
  7. EQL FLAXSEED OIL [Concomitant]
     Dosage: 1000 MG, QD
     Route: 048
  8. EVENING PRIMROSE OIL [Concomitant]
     Dosage: 500 MG, QD
     Route: 048
  9. CVS GLUCOSAMINE CHONDR [Concomitant]
     Dosage: 1 UNK, QD
     Route: 048

REACTIONS (3)
  - Headache [Unknown]
  - Fatigue [Unknown]
  - Haemorrhoids [Unknown]
